FAERS Safety Report 4732715-X (Version None)
Quarter: 2005Q3

REPORT INFORMATION
  Report Type: 
  Country: None (occurrence: None)
  Receive Date: 20050728
  Receipt Date: 20050713
  Transmission Date: 20060218
  Serious: Yes (Hospitalization)
  Sender: FDA-Public Use
  Company Number: 200510346BYL

PATIENT
  Age: 4 Year
  Sex: Female
  Weight: 13.3 kg

DRUGS (8)
  1. GAMIMUNE N 5% [Suspect]
     Indication: DISEASE RECURRENCE
     Dosage: INTRAVENOUS
     Route: 042
     Dates: start: 20050519, end: 20050520
  2. GAMIMUNE N 5% [Suspect]
     Indication: KAWASAKI'S DISEASE
     Dosage: INTRAVENOUS
     Route: 042
     Dates: start: 20050519, end: 20050520
  3. GAMIMUNE N 5% [Suspect]
  4. CEFOTAX [Concomitant]
  5. INTAL [Concomitant]
  6. VENETLIN [Concomitant]
  7. SOLDEM [Concomitant]
  8. ASPIRIN [Concomitant]

REACTIONS (1)
  - ARTHRITIS [None]
